FAERS Safety Report 6833492-9 (Version None)
Quarter: 2010Q3

REPORT INFORMATION
  Report Type: 
  Country: None (occurrence: None)
  Receive Date: 20100712
  Receipt Date: 20070323
  Transmission Date: 20110219
  Serious: No
  Sender: FDA-Public Use
  Company Number: US-PFIZER INC-2007025286

PATIENT
  Sex: Female
  Weight: 90.72 kg

DRUGS (12)
  1. CHANTIX [Suspect]
     Indication: SMOKING CESSATION THERAPY
     Dates: start: 20070321
  2. COMBIVENT [Concomitant]
     Route: 055
  3. NEXIUM [Concomitant]
  4. PRAVASTATIN [Concomitant]
  5. CLONAZEPAM [Concomitant]
  6. LEXAPRO [Concomitant]
  7. ETODOLAC [Concomitant]
  8. MIRTAZAPINE [Concomitant]
  9. TUSSIONEX ^PENNWALT^ [Concomitant]
  10. SOFTENERS, EMOLLIENTS [Concomitant]
  11. TOLAZOLINE [Concomitant]
  12. GABAPENTIN [Concomitant]

REACTIONS (2)
  - DECREASED APPETITE [None]
  - NAUSEA [None]
